FAERS Safety Report 4427840-7 (Version None)
Quarter: 2004Q3

REPORT INFORMATION
  Report Type: 
  Country: None (occurrence: None)
  Receive Date: 20040817
  Receipt Date: 20040721
  Transmission Date: 20050211
  Serious: Yes (Hospitalization)
  Sender: FDA-Public Use
  Company Number: FR-BRISTOL-MYERS SQUIBB COMPANY-12673398

PATIENT
  Age: 73 Year
  Sex: Male

DRUGS (12)
  1. ENDOXAN [Suspect]
     Indication: POLYARTERITIS NODOSA
     Route: 042
     Dates: start: 20040601, end: 20040601
  2. UROMITEXAN [Suspect]
     Route: 042
     Dates: start: 20040601, end: 20040601
  3. IMOVANE [Suspect]
     Route: 048
     Dates: start: 20040601
  4. OMEPRAZOLE [Suspect]
     Route: 048
     Dates: start: 20040601
  5. FOSAMAX [Suspect]
     Route: 048
     Dates: start: 20040601
  6. PREDNISONE TAB [Concomitant]
  7. CACIT D3 [Concomitant]
  8. DIFFU-K [Concomitant]
  9. ALFUZOSIN HCL [Concomitant]
  10. FLECAINE [Concomitant]
     Indication: ARRHYTHMIA
     Dates: start: 20010101
  11. SOLU-MEDROL [Concomitant]
     Dates: start: 20040529, end: 20040531
  12. LEVOTHYROXINE SODIUM [Concomitant]

REACTIONS (4)
  - BALANCE DISORDER [None]
  - CONFUSIONAL STATE [None]
  - HYPONATRAEMIA [None]
  - SPEECH DISORDER [None]
